APPROVED DRUG PRODUCT: BUMETANIDE
Active Ingredient: BUMETANIDE
Strength: 0.25MG/ML
Dosage Form/Route: INJECTABLE;INJECTION
Application: A074441 | Product #001 | TE Code: AP
Applicant: SAGENT PHARMACEUTICALS
Approved: Jan 27, 1995 | RLD: No | RS: No | Type: RX